FAERS Safety Report 5197437-2 (Version None)
Quarter: 2006Q4

REPORT INFORMATION
  Report Type: 
  Country: None (occurrence: None)
  Receive Date: 20061227
  Receipt Date: 20061120
  Transmission Date: 20070319
  Serious: Yes (Hospitalization)
  Sender: FDA-Public Use
  Company Number: 2006152213

PATIENT
  Age: 26 Year
  Sex: Female

DRUGS (4)
  1. VIRACEPT (TABLETS)  (NELFINAVIR MESILATE) [Suspect]
     Indication: HIV TEST POSITIVE
     Dosage: 5 DOSE FORM 2 X PER 1 DAY / 250 MG, ORAL
     Route: 048
     Dates: start: 19991220
  2. COMBIVIR [Suspect]
     Indication: HIV TEST POSITIVE
     Dosage: 2 DOSE FORM, ORAL
     Route: 048
     Dates: start: 19970915
  3. COUMADIN [Concomitant]
  4. SUSTIVA [Concomitant]

REACTIONS (3)
  - HYPERCHOLESTEROLAEMIA [None]
  - HYPERTRIGLYCERIDAEMIA [None]
  - PULMONARY EMBOLISM [None]
